FAERS Safety Report 11914356 (Version 1)
Quarter: 2016Q1

REPORT INFORMATION
  Report Type: Spontaneous
  Country: US (occurrence: US)
  Receive Date: 20160113
  Receipt Date: 20160113
  Transmission Date: 20160526
  Serious: Yes (Other)
  Sender: FDA-Public Use
  Company Number: US-TRIS PHARMA, INC.-1046458

PATIENT
  Age: 6 Year
  Sex: Male
  Weight: 22 kg

DRUGS (2)
  1. AMOXICILLIN. [Concomitant]
     Active Substance: AMOXICILLIN
  2. CARBINOXAMINE MALEATE ER OS, 4MG/5ML [Suspect]
     Active Substance: CARBINOXAMINE MALEATE
     Indication: RHINITIS ALLERGIC

REACTIONS (1)
  - Epistaxis [Unknown]
